FAERS Safety Report 5110808-5 (Version None)
Quarter: 2006Q3

REPORT INFORMATION
  Report Type: 
  Country: None (occurrence: None)
  Receive Date: 20060913
  Receipt Date: 20060831
  Transmission Date: 20061208
  Serious: Yes (Hospitalization)
  Sender: FDA-Public Use
  Company Number: 2006BH012962

PATIENT
  Age: 60 Year
  Sex: Male
  Weight: 105 kg

DRUGS (4)
  1. IMMUNE GLOBULIN INTRAVENOUS (HUMAN) [Suspect]
     Indication: IMMUNODEFICIENCY
     Dosage: 300 MG; EVERY DAY; IV
     Route: 042
     Dates: start: 20060530, end: 20060531
  2. IMMUNE GLOBULIN INTRAVENOUS (HUMAN) [Suspect]
  3. LORZAAR [Concomitant]
  4. BISOPROLOL FUMARATE [Concomitant]

REACTIONS (6)
  - DEEP VEIN THROMBOSIS [None]
  - FEELING HOT [None]
  - HEADACHE [None]
  - INFUSION RELATED REACTION [None]
  - PNEUMONIA [None]
  - PULMONARY EMBOLISM [None]
